APPROVED DRUG PRODUCT: INDOMETHACIN
Active Ingredient: INDOMETHACIN
Strength: 75MG
Dosage Form/Route: CAPSULE, EXTENDED RELEASE;ORAL
Application: A079175 | Product #001 | TE Code: AB
Applicant: AVANTHI INC
Approved: Mar 6, 2009 | RLD: No | RS: No | Type: RX